FAERS Safety Report 8891790 (Version 1)
Quarter: 2012Q4

REPORT INFORMATION
  Report Type: 
  Country: US (occurrence: US)
  Receive Date: 20121107
  Receipt Date: 20121107
  Transmission Date: 20130627
  Serious: No
  Sender: FDA-Public Use
  Company Number: US-AMGEN-USASP2011056494

PATIENT
  Sex: Female

DRUGS (5)
  1. ENBREL [Suspect]
     Indication: PRODUCT USED FOR UNKNOWN INDICATION
     Dosage: 50 mg, qwk
     Route: 058
  2. METHOTREXATE [Concomitant]
     Dosage: UNK
  3. TYLENOL /00020001/ [Concomitant]
     Dosage: 650 mg, UNK
  4. MULTIMEGA [Concomitant]
  5. FOLIC ACID [Concomitant]
     Dosage: 200 mg, UNK

REACTIONS (2)
  - Pharyngitis streptococcal [Recovered/Resolved]
  - Varicella [Recovered/Resolved]
